FAERS Safety Report 23180033 (Version 1)
Quarter: 2023Q4

REPORT INFORMATION
  Report Type: Spontaneous
  Country: DE (occurrence: DE)
  Receive Date: 20231114
  Receipt Date: 20231114
  Transmission Date: 20240110
  Serious: Yes (Death, Life-Threatening, Other)
  Sender: FDA-Public Use
  Company Number: None

PATIENT
  Age: 23 Year
  Sex: Female
  Weight: 85 kg

DRUGS (4)
  1. ATRACURIUM [Suspect]
     Active Substance: ATRACURIUM
     Indication: Induction of anaesthesia
     Dosage: 35 MILLIGRAM
     Route: 042
  2. METAMIZOLE SODIUM [Concomitant]
     Active Substance: METAMIZOLE SODIUM
     Indication: Analgesic therapy
     Dosage: UNKNOWN
     Route: 065
  3. PROPOFOL [Concomitant]
     Active Substance: PROPOFOL
     Indication: Induction of anaesthesia
     Dosage: UNKNOWN
     Route: 065
  4. SUFENTANIL [Concomitant]
     Active Substance: SUFENTANIL
     Indication: Induction of anaesthesia
     Route: 065

REACTIONS (9)
  - Death [Fatal]
  - Cardio-respiratory arrest [Unknown]
  - Brain hypoxia [Unknown]
  - Bradycardia [Unknown]
  - Bronchospasm [Unknown]
  - Apallic syndrome [Unknown]
  - Anaesthetic complication [Unknown]
  - Maternal exposure during breast feeding [Unknown]
  - Product communication issue [Unknown]

NARRATIVE: CASE EVENT DATE: 20200130
